FAERS Safety Report 5605609-5 (Version None)
Quarter: 2008Q1

REPORT INFORMATION
  Report Type: 
  Country: None (occurrence: None)
  Receive Date: 20080125
  Receipt Date: 20080125
  Transmission Date: 20080703
  Serious: Yes (Hospitalization)
  Sender: FDA-Public Use
  Company Number: None

PATIENT
  Sex: Female
  Weight: 64 kg

DRUGS (2)
  1. PROMETHAZINE [Suspect]
     Indication: NAUSEA
     Dosage: 25MG Q6HRS PRN PO 252MG Q6HRS PRN RECTAL
     Route: 048
     Dates: start: 20071002, end: 20071011
  2. PROMETHAZINE [Suspect]
     Indication: VOMITING
     Dosage: 25MG Q6HRS PRN PO 252MG Q6HRS PRN RECTAL
     Route: 048
     Dates: start: 20071002, end: 20071011

REACTIONS (1)
  - CONVULSION [None]
